FAERS Safety Report 4677232-0 (Version None)
Quarter: 2005Q2

REPORT INFORMATION
  Report Type: 
  Country: None (occurrence: None)
  Receive Date: 20050526
  Receipt Date: 20050526
  Transmission Date: 20051028
  Serious: No
  Sender: FDA-Public Use
  Company Number: None

PATIENT
  Age: 51 Year
  Sex: Male
  Weight: 91.6266 kg

DRUGS (2)
  1. DILAUDID [Suspect]
     Indication: BACK PAIN
     Dosage: 8MG QID PO
     Route: 048
  2. DILAUDID [Suspect]
     Indication: NECK PAIN
     Dosage: 8MG QID PO
     Route: 048

REACTIONS (2)
  - DRUG EFFECT DECREASED [None]
  - PHARMACEUTICAL PRODUCT COMPLAINT [None]
